FAERS Safety Report 11092654 (Version 1)
Quarter: 2015Q2

REPORT INFORMATION
  Report Type: Spontaneous
  Country: US (occurrence: None)
  Receive Date: 20150505
  Receipt Date: 20150505
  Transmission Date: 20150821
  Serious: Yes (Hospitalization)
  Sender: FDA-Public Use
  Company Number: None

PATIENT
  Age: 16 Year
  Sex: Female
  Weight: 58.4 kg

DRUGS (6)
  1. DAUNORUBICIN [Suspect]
     Active Substance: DAUNORUBICIN
     Dates: end: 20150424
  2. VINCRISTINE SULFATE. [Suspect]
     Active Substance: VINCRISTINE SULFATE
     Dates: end: 20150424
  3. CYTARABINE. [Suspect]
     Active Substance: CYTARABINE
     Dates: end: 20150417
  4. PREDNISONE. [Suspect]
     Active Substance: PREDNISONE
     Dates: end: 20150429
  5. METHOTREXATE [Suspect]
     Active Substance: METHOTREXATE
     Dates: end: 20150424
  6. ONCASPAR [Suspect]
     Active Substance: PEGASPARGASE
     Dates: end: 20150420

REACTIONS (11)
  - Generalised tonic-clonic seizure [None]
  - Venous thrombosis [None]
  - Peroneal nerve palsy [None]
  - Febrile neutropenia [None]
  - Unresponsive to stimuli [None]
  - Superior sagittal sinus thrombosis [None]
  - Lethargy [None]
  - Infarction [None]
  - Headache [None]
  - Haemorrhage [None]
  - Brain oedema [None]

NARRATIVE: CASE EVENT DATE: 20150430
